FAERS Safety Report 5248537-X (Version None)
Quarter: 2007Q1

REPORT INFORMATION
  Report Type: 
  Country: None (occurrence: None)
  Receive Date: 20070227
  Receipt Date: 20070216
  Transmission Date: 20070707
  Serious: Yes (Other)
  Sender: FDA-Public Use
  Company Number: GB-PFIZER INC-2007013274

PATIENT
  Sex: Male

DRUGS (1)
  1. CARDURA [Suspect]
     Route: 048

REACTIONS (1)
  - DEMENTIA [None]
